FAERS Safety Report 6443171-8 (Version None)
Quarter: 2009Q4

REPORT INFORMATION
  Report Type: 
  Country: None (occurrence: None)
  Receive Date: 20091117
  Receipt Date: 20091111
  Transmission Date: 20100525
  Serious: Yes (Hospitalization)
  Sender: FDA-Public Use
  Company Number: B0604363A

PATIENT
  Sex: Female
  Weight: 55 kg

DRUGS (9)
  1. LAPATINIB [Suspect]
     Indication: BREAST CANCER
     Dosage: 1500MG PER DAY
     Route: 048
     Dates: start: 20090827
  2. PACLITAXEL [Suspect]
     Indication: BREAST CANCER
     Dosage: 80MGM2 WEEKLY
     Route: 042
     Dates: start: 20090827
  3. MEPROLOL [Concomitant]
     Dosage: 200MG TWICE PER DAY
     Route: 048
     Dates: start: 20060101
  4. SIMVASTATIN [Concomitant]
     Dosage: 20MG TWICE PER DAY
     Route: 048
     Dates: start: 20060101
  5. PANTOZOL [Concomitant]
     Indication: PROPHYLAXIS
     Dosage: 40MG TWICE PER DAY
     Route: 048
     Dates: start: 20090801
  6. AGGRENOX [Concomitant]
     Indication: HYPERTENSION
     Route: 048
     Dates: start: 20070101
  7. IMODIUM [Concomitant]
     Dosage: 2MG UNKNOWN
     Route: 048
     Dates: start: 20090827, end: 20090828
  8. ZOFRAN [Concomitant]
     Indication: NAUSEA
     Dosage: 4MG TWICE PER DAY
     Route: 048
     Dates: start: 20090827, end: 20090828
  9. NOVALGIN [Concomitant]
     Indication: PAIN
     Route: 048
     Dates: start: 20090830, end: 20090830

REACTIONS (1)
  - ANAEMIA [None]
